FAERS Safety Report 6073297-2 (Version None)
Quarter: 2009Q1

REPORT INFORMATION
  Report Type: 
  Country: None (occurrence: None)
  Receive Date: 20090211
  Receipt Date: 20090128
  Transmission Date: 20090719
  Serious: Yes (Other)
  Sender: FDA-Public Use
  Company Number: PHHY2009DE02295

PATIENT
  Age: 68 Year
  Sex: Female

DRUGS (2)
  1. PROVAS [Suspect]
     Indication: HYPERTENSION
     Dosage: 0.5 DF, QD
     Route: 048
     Dates: start: 20081215, end: 20081215
  2. SIMVASTATIN [Concomitant]
     Indication: HYPERCHOLESTEROLAEMIA
     Dosage: 10 MG, PER DAY
     Route: 048
     Dates: start: 20031101

REACTIONS (2)
  - DERMATITIS BULLOUS [None]
  - ERYTHEMA [None]
